FAERS Safety Report 8824527 (Version 2)
Quarter: 2013Q3

REPORT INFORMATION
  Report Type: Spontaneous
  Country: US (occurrence: US)
  Receive Date: 20121004
  Receipt Date: 20130827
  Transmission Date: 20140515
  Serious: No
  Sender: FDA-Public Use
  Company Number: US-PFIZER INC-2011059374

PATIENT
  Age: 73 Year
  Sex: Male
  Weight: 79.37 kg

DRUGS (5)
  1. NORVASC [Suspect]
     Dosage: UNK
  2. AMLODIPINE [Suspect]
     Indication: HYPERTENSION
     Dosage: 5 MG, 1X/DAY
     Route: 048
     Dates: start: 2011
  3. AMLODIPINE [Suspect]
     Dosage: UNK
  4. LISINOPRIL [Concomitant]
     Indication: HYPERTENSION
     Dosage: 40 MG, 2X/DAY
  5. ATENOLOL [Concomitant]
     Indication: HYPERTENSION
     Dosage: 100 MG, 2X/DAY

REACTIONS (4)
  - Joint swelling [Unknown]
  - Local swelling [Unknown]
  - Nocturia [Unknown]
  - Drug ineffective [Unknown]
